FAERS Safety Report 5197507-9 (Version None)
Quarter: 2006Q4

REPORT INFORMATION
  Report Type: 
  Country: None (occurrence: None)
  Receive Date: 20060926
  Receipt Date: 20050811
  Transmission Date: 20070319
  Serious: Yes (Other)
  Sender: FDA-Public Use
  Company Number: 05-000607

PATIENT
  Age: 18 Year
  Sex: Female
  Weight: 56.7 kg

DRUGS (4)
  1. DORYX [Suspect]
     Indication: ACNE
     Dosage: 100 MG, ORAL
     Route: 048
     Dates: start: 20041101
  2. ALLEGRA [Concomitant]
  3. ADVAIR (FLUTICASONE PROPIONATE, SALMETEROL XINAFOATE) INHALER [Concomitant]
  4. ALBUTEROL [Concomitant]

REACTIONS (1)
  - PLATELET COUNT DECREASED [None]
